FAERS Safety Report 23207413 (Version 1)
Quarter: 2023Q4

REPORT INFORMATION
  Report Type: Spontaneous
  Country: US (occurrence: US)
  Receive Date: 20231120
  Receipt Date: 20231120
  Transmission Date: 20240110
  Serious: Yes (Other)
  Sender: FDA-Public Use
  Company Number: US-BRACCO-2023US04517

PATIENT
  Age: 71 Year
  Sex: Male

DRUGS (26)
  1. LUMASON [Suspect]
     Active Substance: SULFUR HEXAFLUORIDE
     Indication: Echocardiogram
     Dosage: 2 ML, SINGLE
     Route: 042
     Dates: start: 20230905, end: 20230905
  2. LUMASON [Suspect]
     Active Substance: SULFUR HEXAFLUORIDE
     Indication: Echocardiogram
     Dosage: 2 ML, SINGLE
     Route: 042
     Dates: start: 20230905, end: 20230905
  3. LUMASON [Suspect]
     Active Substance: SULFUR HEXAFLUORIDE
     Indication: Echocardiogram
     Dosage: 2 ML, SINGLE
     Route: 042
     Dates: start: 20230905, end: 20230905
  4. ALBUTEROL SULFATE [Concomitant]
     Active Substance: ALBUTEROL SULFATE
  5. ATORVASTATIN [Concomitant]
     Active Substance: ATORVASTATIN
  6. BENZONATATE [Concomitant]
     Active Substance: BENZONATATE
  7. BREZTRI [Concomitant]
     Active Substance: BUDESONIDE\FORMOTEROL\GLYCOPYRROLATE
  8. CORVALOL [BROMISOVAL;PHENOBARBITAL SODIUM] [Concomitant]
  9. ESOMEPRAZOLE [Concomitant]
     Active Substance: ESOMEPRAZOLE
  10. FERROUS SULFATE [Concomitant]
     Active Substance: FERROUS SULFATE
  11. FLUTICASONE [Concomitant]
     Active Substance: FLUTICASONE
  12. FUROSEMIDE [Suspect]
     Active Substance: FUROSEMIDE
  13. LEVALBUTEROL HYDROCHLORIDE [Concomitant]
     Active Substance: LEVALBUTEROL HYDROCHLORIDE
  14. IPRATROPIUM [Concomitant]
     Active Substance: IPRATROPIUM
  15. METRONIDAZOLE [Concomitant]
     Active Substance: METRONIDAZOLE
  16. VITAMIN D3 [Concomitant]
     Active Substance: CHOLECALCIFEROL
  17. POTASSIUM [Concomitant]
     Active Substance: POTASSIUM
  18. MONTELUKAST [Concomitant]
     Active Substance: MONTELUKAST SODIUM
  19. NEOMYCIN [Concomitant]
     Active Substance: NEOMYCIN
  20. FISH OIL [Concomitant]
     Active Substance: FISH OIL
  21. PREDNISONE [Concomitant]
     Active Substance: PREDNISONE
  22. ROPINIROLE [Concomitant]
     Active Substance: ROPINIROLE
  23. ENTRESTO [Concomitant]
     Active Substance: SACUBITRIL\VALSARTAN
  24. VIAGRA [Concomitant]
     Active Substance: SILDENAFIL CITRATE
  25. SPIRONOLACTONE [Concomitant]
     Active Substance: SPIRONOLACTONE
  26. TRAZODONE [Concomitant]
     Active Substance: TRAZODONE HYDROCHLORIDE

REACTIONS (1)
  - Hypersensitivity [Recovering/Resolving]

NARRATIVE: CASE EVENT DATE: 20230905
